FAERS Safety Report 11778460 (Version 2)
Quarter: 2015Q4

REPORT INFORMATION
  Report Type: Report from Study
  Country: CA (occurrence: CA)
  Receive Date: 20151125
  Receipt Date: 20151231
  Transmission Date: 20160304
  Serious: Yes (Other)
  Sender: FDA-Public Use
  Company Number: CA-VALIDUS PHARMACEUTICALS LLC-CA-2015VAL000516

PATIENT

DRUGS (4)
  1. SANDOSTATIN LAR DEPOT [Suspect]
     Active Substance: OCTREOTIDE ACETATE
     Dosage: 30 MG, BIW (EVERY 2 WEEKS)
     Route: 030
  2. METOPROLOL TARTRATE. [Suspect]
     Active Substance: METOPROLOL TARTRATE
     Indication: PRODUCT USED FOR UNKNOWN INDICATION
     Dosage: UNK
  3. SANDOSTATIN [Suspect]
     Active Substance: OCTREOTIDE ACETATE
     Indication: PANCREATIC NEUROENDOCRINE TUMOUR METASTATIC
     Dosage: TEST DOSE (ONCE)
     Route: 058
     Dates: start: 20131206, end: 20131206
  4. SANDOSTATIN LAR DEPOT [Suspect]
     Active Substance: OCTREOTIDE ACETATE
     Indication: PANCREATIC NEUROENDOCRINE TUMOUR METASTATIC
     Dosage: 30 MG, QMO
     Route: 030
     Dates: start: 20131224

REACTIONS (13)
  - Nasopharyngitis [Recovered/Resolved]
  - Rhinorrhoea [Recovered/Resolved]
  - Malaise [Unknown]
  - Blood glucose increased [Not Recovered/Not Resolved]
  - Injection site pain [Recovered/Resolved]
  - Hepatic lesion [Not Recovered/Not Resolved]
  - Hypertension [Unknown]
  - Malignant neoplasm progression [Unknown]
  - Glycosylated haemoglobin increased [Unknown]
  - Neoplasm [Unknown]
  - Blood glucose decreased [Unknown]
  - Cough [Unknown]
  - Inappropriate schedule of drug administration [Unknown]

NARRATIVE: CASE EVENT DATE: 20131224
